FAERS Safety Report 5398926-8 (Version None)
Quarter: 2007Q3

REPORT INFORMATION
  Report Type: 
  Country: None (occurrence: None)
  Receive Date: 20070724
  Receipt Date: 20070724
  Transmission Date: 20080115
  Serious: Yes (Hospitalization)
  Sender: FDA-Public Use
  Company Number: None

PATIENT
  Sex: Male
  Weight: 98 kg

DRUGS (3)
  1. FLUOROURACIL [Suspect]
     Dosage: 17892 MG
     Dates: end: 20070702
  2. LEUCOVORIN CALCIUM [Suspect]
     Dosage: 2556 MG
     Dates: end: 20070702
  3. ELOXATIN [Suspect]
     Dosage: 543 MG
     Dates: end: 20070702

REACTIONS (1)
  - MESENTERIC VEIN THROMBOSIS [None]
